FAERS Safety Report 20483707 (Version 3)
Quarter: 2022Q2

REPORT INFORMATION
  Report Type: Report from Study
  Country: GB (occurrence: GB)
  Receive Date: 20220217
  Receipt Date: 20220414
  Transmission Date: 20220720
  Serious: Yes (Hospitalization)
  Sender: FDA-Public Use
  Company Number: GB-NOVARTISPH-NVSC2022GB029200

PATIENT
  Age: 5 Year
  Sex: Male
  Weight: 15.8 kg

DRUGS (23)
  1. CYCLOPHOSPHAMIDE [Suspect]
     Active Substance: CYCLOPHOSPHAMIDE
     Indication: Brain neoplasm malignant
     Dosage: 250 MG/M2, 1 IN 1 D (5 DAYS EVERY 21 DAYS)
     Route: 042
     Dates: start: 20220121
  2. TOPOTECAN [Suspect]
     Active Substance: TOPOTECAN HYDROCHLORIDE
     Indication: Brain neoplasm malignant
     Dosage: UNK
     Route: 065
  3. TOPOTECAN [Suspect]
     Active Substance: TOPOTECAN HYDROCHLORIDE
     Dosage: UNK
     Route: 065
  4. TOPOTECAN [Suspect]
     Active Substance: TOPOTECAN HYDROCHLORIDE
     Dosage: 0.5 MG/M2, 1 IN 1 D (5 DAYS IN EVERY 21 DAYS)
     Route: 042
     Dates: start: 20220121
  5. VENETOCLAX [Suspect]
     Active Substance: VENETOCLAX
     Indication: Brain neoplasm malignant
     Dosage: 120 MG, QD
     Route: 065
     Dates: start: 20220119, end: 20220119
  6. VENETOCLAX [Suspect]
     Active Substance: VENETOCLAX
     Dosage: 250 MG, QD
     Route: 065
     Dates: start: 20220120
  7. COTRIMOXAZOLE [Concomitant]
     Active Substance: SULFAMETHOXAZOLE\TRIMETHOPRIM
     Indication: Infection prophylaxis
     Dosage: BID ON MONDAY AND TUESDAY 240 MG
     Route: 048
     Dates: start: 20220119
  8. LOPERAMIDE [Concomitant]
     Active Substance: LOPERAMIDE
     Indication: Diarrhoea
     Dosage: 1 MG, PRN
     Route: 048
     Dates: start: 20220119
  9. ONDANSETRON [Concomitant]
     Active Substance: ONDANSETRON
     Indication: Prophylaxis of nausea and vomiting
     Dosage: 3 TIMES PER DAY (4 MG, 1 AS REQUIRED
     Route: 048
     Dates: start: 20220119
  10. ONDANSETRON [Concomitant]
     Active Substance: ONDANSETRON
     Dosage: 9 MG, QD, 3MG , 3
     Route: 042
     Dates: start: 20220123
  11. OXYCODONE [Concomitant]
     Active Substance: OXYCODONE
     Indication: Pain prophylaxis
     Dosage: 12 MG(3 MG, 4 IN 1 DAY)
     Route: 048
     Dates: start: 20220119, end: 20220210
  12. OXYCODONE [Concomitant]
     Active Substance: OXYCODONE
     Indication: Abdominal pain
     Dosage: 16 MG (4 MG, 4 IN 1 D)
     Route: 048
     Dates: start: 20220211, end: 20220303
  13. OXYCODONE [Concomitant]
     Active Substance: OXYCODONE
     Indication: Arthralgia
     Dosage: 24 MG (6 MG, 4 IN 1 D)
     Route: 048
     Dates: start: 20220304
  14. PREGABALIN [Concomitant]
     Active Substance: PREGABALIN
     Indication: Anxiety
     Dosage: 40 MG, 2 IN 1 DAY
     Route: 048
     Dates: start: 20220119
  15. PREGABALIN [Concomitant]
     Active Substance: PREGABALIN
     Indication: Abdominal pain
  16. PREGABALIN [Concomitant]
     Active Substance: PREGABALIN
     Indication: Arthralgia
  17. PREGABALIN [Concomitant]
     Active Substance: PREGABALIN
     Indication: Pain prophylaxis
  18. SELENIUM [Concomitant]
     Active Substance: SELENIUM
     Indication: Selenium deficiency
     Dosage: ROUTE VIA PEG TUBE (30 MCG, 1 IN 1 DAY)
     Route: 065
     Dates: start: 20220119
  19. ZINC SULFATE [Concomitant]
     Active Substance: ZINC SULFATE
     Indication: Zinc deficiency
     Dosage: 22.5 MG, QD, ROUTE VIA PEG TUBE
     Route: 065
     Dates: start: 20220119
  20. CHOLECALCIFEROL [Concomitant]
     Active Substance: CHOLECALCIFEROL
     Indication: Mineral supplementation
     Dosage: 3000 UNIT I IN 1 DAY
     Route: 048
     Dates: start: 20220123
  21. CYCLIZINE [Concomitant]
     Active Substance: CYCLIZINE
     Indication: Nausea
     Dosage: 1.5 MG/KG (0.5 MG/KG 3 IN 1 DAY
     Route: 042
     Dates: start: 20220123
  22. LACTULOSE [Concomitant]
     Active Substance: LACTULOSE
     Indication: Constipation
     Dosage: 5 ML (2.5 ML, 2 IN 1 D)
     Route: 048
     Dates: start: 20220203
  23. MOVICOL [Concomitant]
     Active Substance: POLYETHYLENE GLYCOL 3350\POTASSIUM CHLORIDE\SODIUM BICARBONATE\SODIUM CHLORIDE
     Indication: Constipation
     Dosage: 2 SACHET (1 SACHET, 2 IN 1 D)
     Route: 048
     Dates: start: 20220203

REACTIONS (4)
  - Haematuria [Not Recovered/Not Resolved]
  - Febrile neutropenia [Not Recovered/Not Resolved]
  - Abdominal pain upper [Unknown]
  - Pyrexia [Recovered/Resolved]

NARRATIVE: CASE EVENT DATE: 20220122
